FAERS Safety Report 5169761-0 (Version None)
Quarter: 2006Q4

REPORT INFORMATION
  Report Type: 
  Country: None (occurrence: None)
  Receive Date: 20061201
  Receipt Date: 20061115
  Transmission Date: 20070319
  Serious: Yes (Other)
  Sender: FDA-Public Use
  Company Number: 2005153297

PATIENT
  Sex: Female
  Weight: 70.3075 kg

DRUGS (11)
  1. CELEBREX [Suspect]
     Indication: OSTEOARTHRITIS
  2. DETROL LA [Suspect]
     Indication: INCONTINENCE
     Dosage: ORAL
     Route: 048
  3. ATENOLOL [Suspect]
     Indication: INCONTINENCE
  4. FOSAMAX [Concomitant]
  5. IMODIUM A-D [Concomitant]
  6. ACIDOPHILUS (LACTOBACILLUS ACIDOPHILUS) [Concomitant]
  7. TUMS (CALCIUM CARBONATE) [Concomitant]
  8. ASPIRIN [Concomitant]
  9. MULTIVITAMIN [Concomitant]
  10. LEVSIN (HYOSCYAMINE SULFATE) [Concomitant]
  11. MULTIVITAMIN AND MINERAL SUPPLEMENT (MINERALS NOS, VITAMINS NOS) [Concomitant]

REACTIONS (11)
  - BLADDER PROLAPSE [None]
  - BLOOD PRESSURE INCREASED [None]
  - CONDITION AGGRAVATED [None]
  - DIARRHOEA [None]
  - HYPOTHYROIDISM [None]
  - INCONTINENCE [None]
  - PERIPHERAL VASCULAR DISORDER [None]
  - STOMACH DISCOMFORT [None]
  - SYNOVIAL CYST [None]
  - VASCULAR CALCIFICATION [None]
  - VEIN DISORDER [None]
